FAERS Safety Report 4746301-9 (Version None)
Quarter: 2005Q3

REPORT INFORMATION
  Report Type: 
  Country: None (occurrence: None)
  Receive Date: 20050816
  Receipt Date: 20050728
  Transmission Date: 20060218
  Serious: Yes (Hospitalization)
  Sender: FDA-Public Use
  Company Number: THYM-10672

PATIENT
  Age: 13 Year
  Sex: Male
  Weight: 87 kg

DRUGS (19)
  1. THYMOGLOBULIN [Suspect]
     Indication: KIDNEY TRANSPLANT REJECTION
     Dosage: 175 MG QD IV
     Route: 042
     Dates: start: 20050630, end: 20050708
  2. NORVASC [Concomitant]
  3. CALCITRIOL [Concomitant]
  4. CYCLOSPORINE [Concomitant]
  5. LASIX [Concomitant]
  6. LABETALOL [Concomitant]
  7. NIFEREX [Concomitant]
  8. RANITIDINE [Concomitant]
  9. RENAGEL [Concomitant]
  10. CATAPRES [Concomitant]
  11. RAPAMUNE [Concomitant]
  12. NEPHRO-VITE [Concomitant]
  13. NYSTATIN [Concomitant]
  14. PREDNISONE [Concomitant]
  15. BACTRIM DS [Concomitant]
  16. SODIUM BICARBONATE [Concomitant]
  17. VALCYTE [Concomitant]
  18. CALCIUM CARBONATE [Concomitant]
  19. DARBEPOETIN ALFA [Concomitant]

REACTIONS (9)
  - BLOOD CREATININE INCREASED [None]
  - BLOOD CULTURE POSITIVE [None]
  - BLOOD FIBRINOGEN INCREASED [None]
  - CHILLS [None]
  - DISSEMINATED INTRAVASCULAR COAGULATION [None]
  - FIBRIN D DIMER INCREASED [None]
  - HYDRONEPHROSIS [None]
  - PYREXIA [None]
  - STAPHYLOCOCCAL INFECTION [None]
